FAERS Safety Report 19845622 (Version 7)
Quarter: 2022Q3

REPORT INFORMATION
  Report Type: Spontaneous
  Country: CA (occurrence: CA)
  Receive Date: 20210916
  Receipt Date: 20220805
  Transmission Date: 20221026
  Serious: Yes (Death, Hospitalization, Other)
  Sender: FDA-Public Use
  Company Number: CA-PFIZER INC-202101133260

PATIENT
  Age: 55 Year
  Sex: Female

DRUGS (4)
  1. BRAFTOVI [Suspect]
     Active Substance: ENCORAFENIB
     Indication: Metastatic malignant melanoma
     Dosage: 450 MG, 1X/DAY
     Dates: start: 20210902
  2. BRAFTOVI [Suspect]
     Active Substance: ENCORAFENIB
     Dosage: 450 MG, DAILY
     Dates: start: 20210911
  3. MEKTOVI [Suspect]
     Active Substance: BINIMETINIB
     Indication: Metastatic malignant melanoma
     Dosage: 45 MG, 2X/DAY
     Dates: start: 20210902
  4. MEKTOVI [Suspect]
     Active Substance: BINIMETINIB
     Dosage: 45 MG, 2X/DAY
     Dates: start: 20210911

REACTIONS (7)
  - Neoplasm progression [Fatal]
  - Hypercalcaemia [Fatal]
  - Renal disorder [Recovering/Resolving]
  - Oedema peripheral [Recovered/Resolved]
  - Thrombosis [Unknown]
  - Alopecia [Unknown]
  - Skin lesion [Unknown]
